FAERS Safety Report 8222215 (Version 3)
Quarter: 2013Q1

REPORT INFORMATION
  Report Type: Report from Study
  Country: PT (occurrence: PT)
  Receive Date: 20111102
  Receipt Date: 20130116
  Transmission Date: 20140127
  Serious: Yes (Other)
  Sender: FDA-Public Use
  Company Number: PHHO2004PT01918

PATIENT
  Age: 54 Year
  Sex: Female
  Weight: 70 kg

DRUGS (4)
  1. FTY [Suspect]
     Dosage: 5 MG, QD
     Route: 048
     Dates: start: 20030806
  2. LESCOL [Concomitant]
     Dosage: 40 MG, UNK
     Route: 048
     Dates: start: 200207
  3. FOSAMAX [Concomitant]
     Indication: OSTEOPOROSIS
     Route: 048
     Dates: start: 199903
  4. TEGRETOL [Concomitant]
     Dosage: 400 MG, UNK
     Route: 048
     Dates: start: 199908

REACTIONS (2)
  - Squamous cell carcinoma of skin [Recovered/Resolved]
  - Furuncle [Recovered/Resolved]
